FAERS Safety Report 20006993 (Version 1)
Quarter: 2021Q4

REPORT INFORMATION
  Report Type: Spontaneous
  Country: US (occurrence: US)
  Receive Date: 20211028
  Receipt Date: 20211028
  Transmission Date: 20220304
  Serious: Yes (Hospitalization)
  Sender: FDA-Public Use
  Company Number: US-MYLANLABS-2021M1076469

PATIENT
  Age: 86 Year
  Sex: Male

DRUGS (1)
  1. DEXAMETHASONE [Suspect]
     Active Substance: DEXAMETHASONE
     Indication: COVID-19 pneumonia
     Dosage: HIGH DOSE
     Route: 065

REACTIONS (5)
  - Infective aneurysm [Unknown]
  - Candida infection [Unknown]
  - Subdural haematoma [Unknown]
  - Mental status changes [Unknown]
  - Off label use [Unknown]
